FAERS Safety Report 14946609 (Version 1)
Quarter: 2018Q2

REPORT INFORMATION
  Report Type: Spontaneous
  Country: JP (occurrence: JP)
  Receive Date: 20180529
  Receipt Date: 20180529
  Transmission Date: 20180711
  Serious: Yes (Death, Hospitalization, Other)
  Sender: FDA-Public Use
  Company Number: JP-BRISTOL-MYERS SQUIBB COMPANY-BMS-2018-047690

PATIENT
  Age: 56 Year
  Sex: Female

DRUGS (1)
  1. METGLUCO [Suspect]
     Active Substance: METFORMIN HYDROCHLORIDE
     Indication: PRODUCT USED FOR UNKNOWN INDICATION
     Dosage: 1000 MG, UNK
     Route: 048

REACTIONS (6)
  - Gastrointestinal perforation [Fatal]
  - Intentional overdose [Fatal]
  - Lactic acidosis [Fatal]
  - Completed suicide [Fatal]
  - Peritonitis [Fatal]
  - Poisoning [Fatal]
